FAERS Safety Report 6688844-7 (Version None)
Quarter: 2010Q2

REPORT INFORMATION
  Report Type: 
  Country: None (occurrence: None)
  Receive Date: 20100420
  Receipt Date: 20100408
  Transmission Date: 20101027
  Serious: Yes (Other)
  Sender: FDA-Public Use
  Company Number: DE-PFIZER INC-2010044319

PATIENT
  Age: 45 Year
  Sex: Male

DRUGS (5)
  1. LYRICA [Suspect]
     Indication: INTERVERTEBRAL DISC PROTRUSION
     Dosage: 75 MG, 2X/DAY
     Route: 048
     Dates: start: 20100223, end: 20100401
  2. LYRICA [Suspect]
     Indication: PAIN
  3. TRIAMCINOLONE [Suspect]
  4. MORPHINE SULFATE [Concomitant]
  5. TILIDINE [Concomitant]
     Dosage: 100 MG, 1X/DAY
     Dates: start: 20100223

REACTIONS (2)
  - GRAND MAL CONVULSION [None]
  - NEUROPATHY PERIPHERAL [None]
